FAERS Safety Report 6166369-5 (Version None)
Quarter: 2009Q2

REPORT INFORMATION
  Report Type: 
  Country: None (occurrence: None)
  Receive Date: 20090424
  Receipt Date: 20081126
  Transmission Date: 20091009
  Serious: No
  Sender: FDA-Public Use
  Company Number: A0758323A

PATIENT
  Sex: Female

DRUGS (3)
  1. DEXEDRINE [Suspect]
     Indication: NARCOLEPSY
     Dosage: 15MG PER DAY
     Route: 048
  2. BENICAR [Concomitant]
     Indication: HYPERTENSION
  3. PROTONIX [Concomitant]

REACTIONS (1)
  - DRY MOUTH [None]
